FAERS Safety Report 9060110 (Version 1)
Quarter: 2013Q1

REPORT INFORMATION
  Report Type: Spontaneous
  Country: US (occurrence: US)
  Receive Date: 20130212
  Receipt Date: 20130212
  Transmission Date: 20140127
  Serious: Yes (Hospitalization)
  Sender: FDA-Public Use
  Company Number: US-BAYER-2013-017163

PATIENT
  Age: 25 Year
  Sex: Female

DRUGS (19)
  1. YAZ [Suspect]
  2. GIANVI [Suspect]
  3. CEPHALEXIN [Concomitant]
  4. TOPIRAMATE [Concomitant]
  5. TRAZODONE [Concomitant]
  6. SUMATRIPTAN [Concomitant]
  7. GENTAMICIN [Concomitant]
  8. METRONIDAZOLE [Concomitant]
     Dosage: 0.75 %, UNK
     Route: 067
  9. CIPROFLOXACIN HCL [Concomitant]
  10. FLUCONAZOLE [Concomitant]
  11. HYDROCODONE W/ACETAMINOPHEN [Concomitant]
  12. ZOLPIDEM TARTRATE [Concomitant]
  13. LORAZEPAM [Concomitant]
  14. TREXIMET [Concomitant]
     Dosage: UNK
     Dates: start: 20111006
  15. NORCO [Concomitant]
     Dosage: UNK
     Dates: start: 20111108
  16. IMITREX [Concomitant]
  17. TOPAMAX [Concomitant]
  18. DESYREL [Concomitant]
  19. KARIVA [Concomitant]

REACTIONS (1)
  - Pulmonary embolism [None]
